FAERS Safety Report 8681891 (Version 3)
Quarter: 2013Q1

REPORT INFORMATION
  Report Type: Report from Study
  Country: FR (occurrence: FR)
  Receive Date: 20120725
  Receipt Date: 20130225
  Transmission Date: 20140127
  Serious: Yes (Disabling)
  Sender: FDA-Public Use
  Company Number: FR-INCYTE CORPORATION-2012IN000698

PATIENT
  Age: 80 Year
  Sex: Female
  Weight: 61 kg

DRUGS (9)
  1. INCB018424 [Suspect]
     Indication: MYELOFIBROSIS
     Dosage: 15 MG, BID
     Route: 048
     Dates: start: 20111222
  2. INCB018424 [Suspect]
     Dosage: 10-15 MG, QD
     Route: 065
     Dates: start: 20120125, end: 201203
  3. INCB018424 [Suspect]
     Dosage: 10-15 MG, QD
     Route: 048
     Dates: start: 201203, end: 20120710
  4. EPREX [Concomitant]
     Dosage: UNK
     Dates: start: 20120306
  5. SURMONTIL [Concomitant]
  6. NEO MERCAZOLE [Concomitant]
  7. ASPIRIN [Concomitant]
  8. MYOLASTAN [Concomitant]
  9. TANAKAN [Concomitant]

REACTIONS (2)
  - Axonal neuropathy [Not Recovered/Not Resolved]
  - Dysaesthesia [Not Recovered/Not Resolved]
